FAERS Safety Report 20803934 (Version 2)
Quarter: 2022Q2

REPORT INFORMATION
  Report Type: Spontaneous
  Country: ES (occurrence: ES)
  Receive Date: 20220509
  Receipt Date: 20220613
  Transmission Date: 20220721
  Serious: Yes (Hospitalization)
  Sender: FDA-Public Use
  Company Number: ES-MYLANLABS-2022M1033607

PATIENT
  Sex: Male

DRUGS (26)
  1. AMISULPRIDE [Suspect]
     Active Substance: AMISULPRIDE
     Indication: Schizotypal personality disorder
     Dosage: 400 MILLIGRAM, QD
     Dates: start: 1994, end: 201512
  2. AMISULPRIDE [Suspect]
     Active Substance: AMISULPRIDE
     Dosage: 800 MILLIGRAM, QD
     Dates: start: 201512, end: 201604
  3. AMISULPRIDE [Suspect]
     Active Substance: AMISULPRIDE
     Dosage: 600 MILLIGRAM, QD
     Dates: start: 201604, end: 201606
  4. AMISULPRIDE [Suspect]
     Active Substance: AMISULPRIDE
     Dosage: 400 MILLIGRAM, QD
     Dates: start: 201606, end: 201702
  5. OLANZAPINE [Suspect]
     Active Substance: OLANZAPINE
     Indication: Schizotypal personality disorder
     Dosage: 20 MILLIGRAM, QD
     Route: 048
     Dates: start: 201610, end: 201702
  6. OLANZAPINE [Suspect]
     Active Substance: OLANZAPINE
     Indication: Schizoaffective disorder
     Dosage: 20 MILLIGRAM, QD
     Route: 048
     Dates: start: 201705, end: 201712
  7. QUETIAPINE [Interacting]
     Active Substance: QUETIAPINE
     Indication: Schizotypal personality disorder
     Dosage: 100 MILLIGRAM, QD
     Dates: start: 201604, end: 201606
  8. FLUOXETINE [Interacting]
     Active Substance: FLUOXETINE HYDROCHLORIDE
     Indication: Schizotypal personality disorder
     Dosage: 20 MILLIGRAM, QD
     Dates: start: 201604, end: 201606
  9. LITHIUM [Suspect]
     Active Substance: LITHIUM
     Indication: Schizotypal personality disorder
     Dosage: 800 MILLIGRAM, QD
     Dates: start: 1994, end: 201604
  10. LITHIUM [Suspect]
     Active Substance: LITHIUM
     Dosage: 600 MILLIGRAM, QD
     Dates: start: 201702, end: 201705
  11. LITHIUM [Suspect]
     Active Substance: LITHIUM
     Dosage: 1200 MILLIGRAM, QD
     Dates: start: 201712
  12. CLOBAZAM [Suspect]
     Active Substance: CLOBAZAM
     Indication: Schizotypal personality disorder
     Dosage: UNK
  13. CLOBAZAM [Suspect]
     Active Substance: CLOBAZAM
     Indication: Schizoaffective disorder
  14. VALPROATE [Suspect]
     Active Substance: VALPROIC ACID
     Indication: Schizotypal personality disorder
     Dosage: 500 MILLIGRAM, QD
     Dates: start: 201606, end: 201609
  15. VALPROATE [Suspect]
     Active Substance: VALPROIC ACID
     Dosage: 1000 MILLIGRAM, QD
     Dates: start: 201610, end: 201705
  16. LEVOMEPROMAZINE [Suspect]
     Active Substance: LEVOMEPROMAZINE
     Indication: Schizotypal personality disorder
     Dosage: 100 MILLIGRAM, QD
     Dates: start: 201610, end: 201702
  17. LEVOMEPROMAZINE [Suspect]
     Active Substance: LEVOMEPROMAZINE
     Indication: Schizoaffective disorder
  18. HALOPERIDOL [Suspect]
     Active Substance: HALOPERIDOL
     Indication: Mania
     Dosage: UNK
  19. TRAZODONE [Concomitant]
     Active Substance: TRAZODONE HYDROCHLORIDE
     Indication: Schizotypal personality disorder
     Dosage: 200 MILLIGRAM, QD
  20. ESCITALOPRAM [Concomitant]
     Active Substance: ESCITALOPRAM OXALATE
     Indication: Schizotypal personality disorder
     Dosage: 15 MILLIGRAM, QD
  21. LORAZEPAM [Concomitant]
     Active Substance: LORAZEPAM
     Indication: Schizotypal personality disorder
     Dosage: UNK
  22. ARIPIPRAZOLE [Concomitant]
     Active Substance: ARIPIPRAZOLE
     Indication: Schizotypal personality disorder
     Dosage: 10 MILLIGRAM, QD
     Dates: start: 201702, end: 201705
  23. ARIPIPRAZOLE [Concomitant]
     Active Substance: ARIPIPRAZOLE
     Dosage: 400 MILLIGRAM, 28D CYCLE
     Dates: start: 201712
  24. CLONAZEPAM [Concomitant]
     Active Substance: CLONAZEPAM
     Indication: Schizotypal personality disorder
     Dosage: UNK
  25. CITALOPRAM [Concomitant]
     Active Substance: CITALOPRAM HYDROBROMIDE
     Indication: Schizotypal personality disorder
     Dosage: UNK
  26. LORMETAZEPAM [Concomitant]
     Active Substance: LORMETAZEPAM
     Indication: Schizotypal personality disorder
     Dosage: UNK

REACTIONS (9)
  - Extrapyramidal disorder [Unknown]
  - Insomnia [Unknown]
  - Hyperprolactinaemia [Unknown]
  - Sedation [Unknown]
  - Deep vein thrombosis [Unknown]
  - Drug level increased [Unknown]
  - Drug interaction [Unknown]
  - Drug ineffective [Unknown]
  - Off label use [Unknown]

NARRATIVE: CASE EVENT DATE: 20160101
